FAERS Safety Report 15222779 (Version 1)
Quarter: 2018Q3

REPORT INFORMATION
  Report Type: Report from Study
  Country: DK (occurrence: DK)
  Receive Date: 20180731
  Receipt Date: 20180731
  Transmission Date: 20181010
  Serious: Yes (Congenital Anomaly, Other)
  Sender: FDA-Public Use
  Company Number: DK-SHIRE-DK201828354

PATIENT

DRUGS (2)
  1. OLSALAZINE [Concomitant]
     Active Substance: OLSALAZINE
     Indication: FOETAL EXPOSURE TIMING UNSPECIFIED
     Route: 064
  2. 476 (MESALAZINE/MESALAMINE) [Suspect]
     Active Substance: MESALAMINE
     Indication: FOETAL EXPOSURE TIMING UNSPECIFIED
     Route: 064

REACTIONS (2)
  - Foetal exposure during pregnancy [Unknown]
  - Aphakia congenital [Unknown]
